FAERS Safety Report 6815519-3 (Version None)
Quarter: 2010Q3

REPORT INFORMATION
  Report Type: 
  Country: None (occurrence: None)
  Receive Date: 20100702
  Receipt Date: 20100630
  Transmission Date: 20110219
  Serious: Yes (Death, Hospitalization, Other)
  Sender: FDA-Public Use
  Company Number: PHHY2010CA37707

PATIENT
  Sex: Male

DRUGS (5)
  1. SANDOSTATIN LAR [Suspect]
     Indication: CARCINOID TUMOUR
     Dosage: 30 MG, EVERY 4 WEEKS
     Route: 030
     Dates: start: 20100315, end: 20100616
  2. HYDROMORPHONE [Concomitant]
     Dosage: 01 MG, QD
  3. HYDROMORPHONE [Concomitant]
     Dosage: 1 MG, BID
  4. DILTIAZEM [Concomitant]
     Indication: CARDIAC DISORDER
     Dosage: 120 MG, QD
     Route: 048
  5. FENTANYL [Concomitant]
     Indication: PAIN
     Dosage: 25 MG, QID

REACTIONS (4)
  - DEATH [None]
  - HEPATIC PAIN [None]
  - INJECTION SITE DISCOMFORT [None]
  - VOMITING [None]
